FAERS Safety Report 7814559-5 (Version None)
Quarter: 2011Q4

REPORT INFORMATION
  Report Type: 
  Country: None (occurrence: None)
  Receive Date: 20111014
  Receipt Date: 20111006
  Transmission Date: 20120403
  Serious: Yes (Death, Life-Threatening)
  Sender: FDA-Public Use
  Company Number: CN-MPIJNJ-2011-04811

PATIENT

DRUGS (5)
  1. DEXAMETHASONE [Concomitant]
     Indication: MULTIPLE MYELOMA
     Dosage: UNK
     Route: 065
     Dates: start: 20110831
  2. BONEFOS [Concomitant]
     Dosage: 1600 MG, UNK
     Route: 048
     Dates: start: 20080101, end: 20110907
  3. VELCADE [Suspect]
     Indication: MULTIPLE MYELOMA
     Dosage: UNK
     Route: 065
     Dates: start: 20110831
  4. NITRENDIPINE [Concomitant]
     Indication: HYPERTENSION
     Dosage: 20 MG, UNK
     Route: 048
     Dates: start: 20030101, end: 20110907
  5. NIMODIPINE [Concomitant]
     Indication: HYPERTENSION
     Dosage: 40 MG, UNK
     Route: 048
     Dates: start: 20030101, end: 20110907

REACTIONS (2)
  - ACUTE MYOCARDIAL INFARCTION [None]
  - THROMBOCYTOPENIA [None]
